FAERS Safety Report 10296294 (Version 1)
Quarter: 2014Q3

REPORT INFORMATION
  Report Type: Spontaneous
  Country: US (occurrence: None)
  Receive Date: 20140708
  Receipt Date: 20140708
  Transmission Date: 20150326
  Serious: No
  Sender: FDA-Public Use
  Company Number: None

PATIENT
  Age: 42 Year
  Sex: Female
  Weight: 58.97 kg

DRUGS (1)
  1. TRAMADOL [Suspect]
     Active Substance: TRAMADOL
     Indication: RIB FRACTURE
     Dosage: 1 TABLET, ONCE DAILY, TAKEN BY MOUTH
     Route: 048
     Dates: start: 20140703, end: 20140704

REACTIONS (6)
  - Pain in extremity [None]
  - Back pain [None]
  - Myalgia [None]
  - Arthralgia [None]
  - Musculoskeletal pain [None]
  - Gait disturbance [None]

NARRATIVE: CASE EVENT DATE: 20140704
